FAERS Safety Report 8080186-0 (Version None)
Quarter: 2012Q1

REPORT INFORMATION
  Report Type: 
  Country: None (occurrence: None)
  Receive Date: 20120130
  Receipt Date: 20120120
  Transmission Date: 20120608
  Serious: Yes (Hospitalization)
  Sender: FDA-Public Use
  Company Number: US-BAYER-200934747NA

PATIENT
  Age: 26 Year
  Sex: Female
  Weight: 87.1 kg

DRUGS (4)
  1. REGLAN [Concomitant]
     Dosage: 5 MG, TID
     Dates: start: 20080108
  2. COUMADIN [Concomitant]
     Dosage: 4 MG, QD
     Dates: start: 20080108
  3. YAZ [Suspect]
     Indication: CONTRACEPTION
     Dosage: 1 DF (DAILY DOSE), QD, ORAL
     Route: 048
     Dates: start: 20070901, end: 20071201
  4. PROTONIX [Concomitant]
     Dosage: 40 MG, QD
     Dates: start: 20080108

REACTIONS (2)
  - PULMONARY EMBOLISM [None]
  - THROMBOSIS [None]
